FAERS Safety Report 22638511 (Version 2)
Quarter: 2025Q2

REPORT INFORMATION
  Report Type: Spontaneous
  Country: US (occurrence: US)
  Receive Date: 20230626
  Receipt Date: 20250417
  Transmission Date: 20250717
  Serious: No
  Sender: BIOGEN
  Company Number: US-BIOGEN-2020BI00924836

PATIENT
  Sex: Female

DRUGS (9)
  1. TYSABRI [Suspect]
     Active Substance: NATALIZUMAB
     Indication: Multiple sclerosis
     Route: 050
     Dates: start: 20061101
  2. TYSABRI [Suspect]
     Active Substance: NATALIZUMAB
     Dosage: EVERY 5 TO 6 WEEKS
     Route: 050
  3. AMPYRA [Concomitant]
     Active Substance: DALFAMPRIDINE
     Dosage: ER
     Route: 050
  4. BACLOFEN [Concomitant]
     Active Substance: BACLOFEN
     Dosage: QHS
     Route: 050
  5. MELATONIN [Concomitant]
     Active Substance: MELATONIN
     Route: 050
  6. MYRBETRIQ [Concomitant]
     Active Substance: MIRABEGRON
     Route: 050
  7. NALTREXONE [Concomitant]
     Active Substance: NALTREXONE
     Dosage: QHS
     Route: 050
  8. PROLIA [Concomitant]
     Active Substance: DENOSUMAB
     Route: 050
  9. MELOXICAM [Concomitant]
     Active Substance: MELOXICAM
     Route: 050

REACTIONS (3)
  - Prescribed underdose [Recovered/Resolved]
  - Product dose omission issue [Unknown]
  - Multiple sclerosis [Not Recovered/Not Resolved]
